FAERS Safety Report 8901923 (Version 1)
Quarter: 2012Q4

REPORT INFORMATION
  Report Type: Spontaneous
  Country: US (occurrence: None)
  Receive Date: 20121109
  Receipt Date: 20121109
  Transmission Date: 20130627
  Serious: Yes (Other)
  Sender: FDA-Public Use
  Company Number: None

PATIENT
  Age: 2 Year
  Sex: Female
  Weight: 15.88 kg

DRUGS (1)
  1. TAMIFLU [Suspect]
     Indication: FLU
     Dosage: 5ml; frequency: 2; Route: po
     Route: 048
     Dates: start: 20121102, end: 20121106

REACTIONS (9)
  - Mood altered [None]
  - Abnormal behaviour [None]
  - Aggression [None]
  - Abnormal dreams [None]
  - Screaming [None]
  - Pain in extremity [None]
  - Contusion [None]
  - Lip injury [None]
  - Personality change [None]
